FAERS Safety Report 16305500 (Version 1)
Quarter: 2019Q2

REPORT INFORMATION
  Report Type: Report from Study
  Country: US (occurrence: US)
  Receive Date: 20190513
  Receipt Date: 20190513
  Transmission Date: 20190711
  Serious: Yes (Other)
  Sender: FDA-Public Use
  Company Number: US-HORIZON-PEN-0471-2019

PATIENT
  Age: 65 Year
  Sex: Female

DRUGS (3)
  1. LORAZEPAM. [Concomitant]
     Active Substance: LORAZEPAM
  2. TRIANT-HC [Concomitant]
  3. PENNSAID [Suspect]
     Active Substance: DICLOFENAC SODIUM
     Indication: PRODUCT USED FOR UNKNOWN INDICATION
     Dosage: 1 TO 2 PUMPS BID

REACTIONS (5)
  - Abdominal pain upper [Recovered/Resolved]
  - Sleep terror [Recovered/Resolved]
  - Off label use [Recovered/Resolved]
  - Gastritis [Recovered/Resolved]
  - Mouth haemorrhage [Recovered/Resolved]
